FAERS Safety Report 14631618 (Version 3)
Quarter: 2018Q2

REPORT INFORMATION
  Report Type: Spontaneous
  Country: IN (occurrence: IN)
  Receive Date: 20180313
  Receipt Date: 20180425
  Transmission Date: 20180711
  Serious: Yes (Disabling, Other)
  Sender: FDA-Public Use
  Company Number: IN-PFIZER INC-2018096353

PATIENT
  Age: 22 Year
  Sex: Male
  Weight: 54 kg

DRUGS (12)
  1. CLOFAZIMINE [Suspect]
     Active Substance: CLOFAZIMINE
     Dosage: 100 MG, 1X/DAY
     Route: 048
     Dates: start: 20170822
  2. RANITIDINE /00550802/ [Concomitant]
     Indication: DYSPEPSIA
  3. PREGABALIN. [Concomitant]
     Active Substance: PREGABALIN
     Dosage: UNK
  4. AMOXYCLAV [Suspect]
     Active Substance: AMOXICILLIN\CLAVULANATE POTASSIUM
     Dosage: 625 MG, 3X/DAY
     Route: 048
     Dates: start: 20170822
  5. IMIPENEM [Suspect]
     Active Substance: IMIPENEM
     Dosage: 1 G, 2X/DAY
     Route: 042
     Dates: start: 20170822
  6. CYCLOSERINE. [Suspect]
     Active Substance: CYCLOSERINE
     Dosage: 250 MG, 2X/DAY
     Route: 048
     Dates: start: 20170822
  7. LINEZOLID. [Suspect]
     Active Substance: LINEZOLID
     Dosage: 600 MG, 1X/DAY
     Route: 048
     Dates: start: 20170822, end: 20180117
  8. DELAMANID [Suspect]
     Active Substance: DELAMANID
     Dosage: 100 MG, DAILY
     Route: 048
     Dates: start: 20170831
  9. DELAMANID [Suspect]
     Active Substance: DELAMANID
     Dosage: 100 MG, 2X/DAY
     Dates: start: 20170831
  10. VITAMIN B6 [Concomitant]
     Active Substance: PYRIDOXINE HYDROCHLORIDE
     Dosage: UNK
  11. ETHIONAMIDE [Suspect]
     Active Substance: ETHIONAMIDE
     Dosage: 250 MG, 3X/DAY (TID, 2-1)
     Route: 048
     Dates: start: 20170822, end: 20180117
  12. RANITIDINE /00550802/ [Concomitant]
     Indication: GASTROOESOPHAGEAL REFLUX DISEASE
     Dosage: UNK

REACTIONS (10)
  - Burning sensation [Unknown]
  - Product prescribing issue [Unknown]
  - Skin discolouration [Unknown]
  - Pruritus [Recovered/Resolved]
  - Dermatitis [Not Recovered/Not Resolved]
  - Nausea [Unknown]
  - Vomiting [Unknown]
  - Skin injury [Recovered/Resolved]
  - Neuropathy peripheral [Recovering/Resolving]
  - Pain [Recovered/Resolved]

NARRATIVE: CASE EVENT DATE: 201712
